FAERS Safety Report 5586554-0 (Version None)
Quarter: 2008Q1

REPORT INFORMATION
  Report Type: 
  Country: None (occurrence: None)
  Receive Date: 20080110
  Receipt Date: 20071227
  Transmission Date: 20080703
  Serious: Yes (Hospitalization)
  Sender: FDA-Public Use
  Company Number: CZ-AMGEN-UK258617

PATIENT
  Age: 77 Year
  Sex: Male

DRUGS (13)
  1. MIMPARA [Suspect]
     Indication: HYPERPARATHYROIDISM SECONDARY
     Route: 048
     Dates: start: 20070831
  2. DIOSMIN [Concomitant]
     Route: 048
     Dates: start: 20020221
  3. SIMETHICONE [Concomitant]
     Route: 048
     Dates: start: 20070110
  4. FUROSEMIDE [Concomitant]
     Route: 048
     Dates: start: 20060617
  5. OMEPRAZOLE [Concomitant]
     Route: 048
     Dates: start: 20060617
  6. PYRIDOSTIGMINE BROMIDE [Concomitant]
     Route: 048
     Dates: start: 20041124
  7. EPOETIN ALFA [Concomitant]
     Route: 042
     Dates: start: 20070528
  8. RAMIPRIL [Concomitant]
     Route: 048
     Dates: start: 20050821
  9. SEVELAMER HCL [Concomitant]
     Route: 048
     Dates: start: 20070105
  10. RILMENIDINE [Concomitant]
     Route: 048
     Dates: start: 20061108
  11. PARICALCITOL [Concomitant]
     Route: 042
     Dates: start: 20070831
  12. AMLODIPINE [Concomitant]
     Route: 048
     Dates: start: 20070514
  13. FLAVON [Concomitant]
     Route: 048

REACTIONS (1)
  - PANCYTOPENIA [None]
